FAERS Safety Report 13974348 (Version 2)
Quarter: 2017Q3

REPORT INFORMATION
  Report Type: Report from Study
  Country: US (occurrence: US)
  Receive Date: 20170915
  Receipt Date: 20170926
  Transmission Date: 20171128
  Serious: Yes (Other)
  Sender: FDA-Public Use
  Company Number: US-AMGEN-USASL2017122276

PATIENT
  Age: 71 Year
  Sex: Male
  Weight: 89.34 kg

DRUGS (3)
  1. REPATHA [Suspect]
     Active Substance: EVOLOCUMAB
     Indication: BLOOD CHOLESTEROL INCREASED
     Dosage: UNK, QMO
     Route: 065
  2. REPATHA [Suspect]
     Active Substance: EVOLOCUMAB
     Indication: ARTERIOSCLEROSIS CORONARY ARTERY
  3. REPATHA [Suspect]
     Active Substance: EVOLOCUMAB
     Indication: HYPERCHOLESTEROLAEMIA
     Dosage: 140 MG, Q2WK
     Route: 065
     Dates: start: 20170801, end: 20170809

REACTIONS (11)
  - Muscular weakness [Unknown]
  - Malaise [Recovered/Resolved]
  - Pulmonary congestion [Unknown]
  - Pulmonary pain [Unknown]
  - Oropharyngeal pain [Unknown]
  - Sneezing [Unknown]
  - Muscle spasms [Unknown]
  - Influenza like illness [Recovered/Resolved]
  - Hypersensitivity [Unknown]
  - Dysphagia [Unknown]
  - Peripheral coldness [Unknown]

NARRATIVE: CASE EVENT DATE: 201708
